FAERS Safety Report 7803625-6 (Version None)
Quarter: 2011Q4

REPORT INFORMATION
  Report Type: 
  Country: None (occurrence: None)
  Receive Date: 20111010
  Receipt Date: 20110929
  Transmission Date: 20120403
  Serious: Yes (Hospitalization)
  Sender: FDA-Public Use
  Company Number: US-BIOGENIDEC-2011BI031301

PATIENT
  Age: 50 Year
  Sex: Female

DRUGS (7)
  1. SEROQUEL [Concomitant]
     Indication: BIPOLAR DISORDER
     Route: 048
  2. TYSABRI [Suspect]
     Indication: MULTIPLE SCLEROSIS
     Route: 042
     Dates: start: 20071107, end: 20100813
  3. EFFEXOR [Concomitant]
     Indication: BIPOLAR DISORDER
     Route: 048
  4. TOPAMAX [Concomitant]
     Indication: TREMOR
     Route: 048
  5. TYSABRI [Suspect]
     Route: 042
     Dates: start: 20110804
  6. LITHIUM [Concomitant]
     Indication: BIPOLAR DISORDER
     Route: 048
  7. LEVOTHYROXINE SODIUM [Concomitant]
     Indication: HYPOTHYROIDISM
     Route: 048

REACTIONS (2)
  - MUSCLE SPASTICITY [None]
  - SPONDYLITIC MYELOPATHY [None]
